FAERS Safety Report 6557880-3 (Version None)
Quarter: 2010Q1

REPORT INFORMATION
  Report Type: 
  Country: None (occurrence: None)
  Receive Date: 20100129
  Receipt Date: 20100119
  Transmission Date: 20100710
  Serious: Yes (Hospitalization)
  Sender: FDA-Public Use
  Company Number: GB-ELI_LILLY_AND_COMPANY-GB201001003322

PATIENT
  Sex: Female
  Weight: 86 kg

DRUGS (9)
  1. PEMETREXED [Suspect]
     Indication: NON-SMALL CELL LUNG CANCER
     Dosage: 500 MG/M2, ON D1 EVERY 21 DAYS
     Route: 042
     Dates: start: 20090728, end: 20090929
  2. PEMETREXED [Suspect]
     Dosage: BLINDED UNK
     Route: 042
     Dates: start: 20091023
  3. CISPLATIN [Suspect]
     Indication: NON-SMALL CELL LUNG CANCER
     Dosage: 75 MG/M2, ON D1 EVERY 21 DAYS
     Route: 042
     Dates: start: 20090728, end: 20090929
  4. FOLIC ACID [Concomitant]
     Indication: PROPHYLAXIS
     Dates: start: 20090723
  5. VIT B12 [Concomitant]
     Indication: PROPHYLAXIS
     Dates: start: 20090723
  6. DEXAMETHASONE [Concomitant]
     Indication: PROPHYLAXIS
     Dates: start: 20090727
  7. DEXAMETHASONE [Concomitant]
     Dosage: 8 MG, 2/D
  8. LANSOPRAZOLE [Concomitant]
     Indication: PROPHYLAXIS
     Dates: start: 20090727
  9. NAPROXEN [Concomitant]
     Indication: PAIN

REACTIONS (2)
  - APHASIA [None]
  - METASTASES TO CENTRAL NERVOUS SYSTEM [None]
